FAERS Safety Report 20141123 (Version 1)
Quarter: 2021Q4

REPORT INFORMATION
  Report Type: Spontaneous
  Country: US (occurrence: None)
  Receive Date: 20211201
  Receipt Date: 20211201
  Transmission Date: 20220303
  Serious: No
  Sender: FDA-Public Use
  Company Number: None

PATIENT

DRUGS (3)
  1. MITOMYCIN [Suspect]
     Active Substance: MITOMYCIN
  2. ETOPOSIDE [Suspect]
     Active Substance: ETOPOSIDE
  3. METHOTREXATE [Suspect]
     Active Substance: METHOTREXATE

REACTIONS (3)
  - Product packaging confusion [None]
  - Product storage error [None]
  - Intercepted product selection error [None]
